FAERS Safety Report 5423015-3 (Version None)
Quarter: 2007Q3

REPORT INFORMATION
  Report Type: 
  Country: None (occurrence: None)
  Receive Date: 20070821
  Receipt Date: 20070814
  Transmission Date: 20080115
  Serious: Yes (Death, Other)
  Sender: FDA-Public Use
  Company Number: 163-21880-07071191

PATIENT
  Age: 65 Year
  Sex: Male

DRUGS (3)
  1. REVLIMID [Suspect]
     Indication: MULTIPLE MYELOMA
     Dosage: 25 MG, 1 IN 1 D, ORAL; 15-10MG, DAILY, ORAL; 5 MG, 1 IN 1 D, ORAL
     Route: 048
     Dates: start: 20060815, end: 20061201
  2. REVLIMID [Suspect]
     Indication: MULTIPLE MYELOMA
     Dosage: 25 MG, 1 IN 1 D, ORAL; 15-10MG, DAILY, ORAL; 5 MG, 1 IN 1 D, ORAL
     Route: 048
     Dates: start: 20061227, end: 20070401
  3. REVLIMID [Suspect]
     Indication: MULTIPLE MYELOMA
     Dosage: 25 MG, 1 IN 1 D, ORAL; 15-10MG, DAILY, ORAL; 5 MG, 1 IN 1 D, ORAL
     Route: 048
     Dates: start: 20070406

REACTIONS (12)
  - ASTHENIA [None]
  - BIOPSY BONE MARROW ABNORMAL [None]
  - DISEASE PROGRESSION [None]
  - EPISTAXIS [None]
  - FATIGUE [None]
  - HYPERCALCAEMIA [None]
  - HYPONATRAEMIA [None]
  - MALAISE [None]
  - MULTIPLE MYELOMA [None]
  - PANCYTOPENIA [None]
  - RENAL FAILURE [None]
  - TYPE 2 DIABETES MELLITUS [None]
